FAERS Safety Report 9251064 (Version 1)
Quarter: 2013Q1

REPORT INFORMATION
  Report Type: Spontaneous
  Country: US (occurrence: None)
  Receive Date: 20130305
  Receipt Date: 20130305
  Transmission Date: 20140127
  Serious: Yes (Other)
  Sender: FDA-Public Use
  Company Number: 163-21880-12100537

PATIENT
  Age: 69 Year
  Sex: Male
  Weight: 66.68 kg

DRUGS (8)
  1. REVLIMID [Suspect]
     Indication: PLASMA CELL MYELOMA
     Dosage: 15 MG, 21 IN 21 D, PO
     Route: 048
     Dates: start: 201209
  2. NEXIUM [Concomitant]
  3. LIBRAX (LIBRAX) [Concomitant]
  4. FLONASE (FLUTICASONE PROPIONATE) [Concomitant]
  5. PEPTO BISMOL (BISMUTH SUBSALICYLATE) [Concomitant]
  6. DEXAMETHASONE (DEXAMETHASONE) [Concomitant]
  7. PRILOSEC [Concomitant]
  8. ASA (ACETYLSALICYLIC ACID) [Concomitant]

REACTIONS (1)
  - Venous thrombosis [None]
